FAERS Safety Report 4471829-9 (Version None)
Quarter: 2004Q4

REPORT INFORMATION
  Report Type: 
  Country: None (occurrence: None)
  Receive Date: 20041006
  Receipt Date: 20040920
  Transmission Date: 20050328
  Serious: Yes (Hospitalization)
  Sender: FDA-Public Use
  Company Number: 8007142

PATIENT
  Age: 55 Year
  Sex: Male
  Weight: 71 kg

DRUGS (9)
  1. KEPPRA [Suspect]
     Indication: TEMPORAL LOBE EPILEPSY
     Dosage: NI; PO
     Route: 048
     Dates: start: 20020101, end: 20030601
  2. KEPPRA [Suspect]
     Indication: TEMPORAL LOBE EPILEPSY
     Dosage: 2000 MG 2/D;PO
     Route: 048
     Dates: start: 20030601, end: 20040823
  3. KEPPRA [Suspect]
     Indication: TEMPORAL LOBE EPILEPSY
     Dosage: 1500 MG 2/D; PO
     Route: 048
     Dates: start: 20040824, end: 20040831
  4. KEPPRA [Suspect]
     Indication: TEMPORAL LOBE EPILEPSY
     Dosage: 1000 MG 2/D; PO
     Route: 048
     Dates: start: 20040901, end: 20040902
  5. KEPPRA [Suspect]
     Indication: TEMPORAL LOBE EPILEPSY
     Dosage: 2000 MG 2/D; PO
     Route: 048
     Dates: start: 20040903
  6. LAMICTAL [Concomitant]
  7. LAMICTAL [Concomitant]
  8. LAMICTAL [Concomitant]
  9. ACTONEL [Concomitant]

REACTIONS (8)
  - ATAXIA [None]
  - BRADYKINESIA [None]
  - CENTRAL NERVOUS SYSTEM MASS [None]
  - DELIRIUM [None]
  - HAEMANGIOMA [None]
  - HALLUCINATION [None]
  - ILLOGICAL THINKING [None]
  - MENTAL STATUS CHANGES [None]
